FAERS Safety Report 18191107 (Version 1)
Quarter: 2020Q3

REPORT INFORMATION
  Report Type: Spontaneous
  Country: US (occurrence: US)
  Receive Date: 20200824
  Receipt Date: 20200824
  Transmission Date: 20201103
  Serious: No
  Sender: FDA-Public Use
  Company Number: US-ROCHE-2581315

PATIENT
  Age: 51 Year
  Sex: Male
  Weight: 81.72 kg

DRUGS (3)
  1. HUMAN CHORIONIC GONADOTROPIN [Concomitant]
     Active Substance: GONADOTROPHIN, CHORIONIC
     Dates: start: 20191206, end: 202001
  2. TAMOXIFEN [Concomitant]
     Active Substance: TAMOXIFEN
  3. ALECENSA [Suspect]
     Active Substance: ALECTINIB HYDROCHLORIDE
     Indication: NON-SMALL CELL LUNG CANCER
     Dosage: YES
     Route: 048
     Dates: start: 20190801

REACTIONS (3)
  - Blood testosterone decreased [Not Recovered/Not Resolved]
  - Libido decreased [Not Recovered/Not Resolved]
  - Gynaecomastia [Not Recovered/Not Resolved]

NARRATIVE: CASE EVENT DATE: 201912
